FAERS Safety Report 9599844 (Version 1)
Quarter: 2013Q4

REPORT INFORMATION
  Report Type: Spontaneous
  Country: US (occurrence: US)
  Receive Date: 20131004
  Receipt Date: 20131004
  Transmission Date: 20140711
  Serious: No
  Sender: FDA-Public Use
  Company Number: US-AMGEN-USASP2013031060

PATIENT
  Age: 63 Year
  Sex: Female
  Weight: 104.31 kg

DRUGS (17)
  1. ENBREL [Suspect]
     Indication: PRODUCT USED FOR UNKNOWN INDICATION
     Dosage: 50 MG, QWK
     Route: 058
  2. MULTIVITAMINS, PLAIN [Concomitant]
     Dosage: UNK
  3. FISH OIL [Concomitant]
     Dosage: UNK
  4. CALCIUM [Concomitant]
     Dosage: 500
  5. B COMPLEX                          /00212701/ [Concomitant]
     Dosage: UNK
  6. CO Q 10                            /00517201/ [Concomitant]
     Dosage: UNK
  7. GLUCOSAMINE [Concomitant]
     Dosage: 750 MG, UNK
  8. FOLIC ACID [Concomitant]
     Dosage: UNK
  9. ASA [Concomitant]
     Dosage: 81 MG, LOW DOSE
  10. NEXIUM                             /01479302/ [Concomitant]
     Dosage: 20 MG, UNK
  11. GABAPENTIN [Concomitant]
     Dosage: 300 MG, UNK
  12. METHOTREXATE [Concomitant]
     Dosage: 2.5 MG, UNK
  13. PERCOCET                           /00446701/ [Concomitant]
     Dosage: 10-325 MG
  14. TRAMADOL HCL [Concomitant]
     Dosage: 300 MG, UNK
  15. VICODIN [Concomitant]
     Dosage: 5-500 MG
  16. CARVEDILOL [Concomitant]
     Dosage: 25 MG, UNK
  17. PRADAXA [Concomitant]
     Dosage: 75 MG, UNK

REACTIONS (1)
  - Injection site pain [Unknown]
